FAERS Safety Report 6334408-4 (Version None)
Quarter: 2009Q3

REPORT INFORMATION
  Report Type: 
  Country: None (occurrence: None)
  Receive Date: 20090831
  Receipt Date: 20080402
  Transmission Date: 20100115
  Serious: Yes (Other)
  Sender: FDA-Public Use
  Company Number: US-ASTRAZENECA-2007UW01952

PATIENT
  Age: 48 Year
  Sex: Female
  Weight: 75.3 kg

DRUGS (49)
  1. SEROQUEL [Suspect]
     Indication: SCHIZOPHRENIA
     Dosage: 100 MG-600 MG
     Route: 048
     Dates: start: 20051027
  2. SEROQUEL [Suspect]
     Indication: BIPOLAR DISORDER
     Dosage: 100 MG-600 MG
     Route: 048
     Dates: start: 20051027
  3. SEROQUEL [Suspect]
     Indication: DEPRESSION
     Dosage: 100 MG-600 MG
     Route: 048
     Dates: start: 20051027
  4. SEROQUEL [Suspect]
     Indication: POST-TRAUMATIC STRESS DISORDER
     Dosage: 100 MG-600 MG
     Route: 048
     Dates: start: 20051027
  5. SEROQUEL [Suspect]
     Indication: SLEEP DISORDER
     Dosage: 100 MG-600 MG
     Route: 048
     Dates: start: 20051027
  6. SEROQUEL [Suspect]
     Indication: INSOMNIA
     Dosage: 100 MG-600 MG
     Route: 048
     Dates: start: 20051027
  7. SEROQUEL [Suspect]
     Indication: ANXIETY
     Dosage: 100 MG-600 MG
     Route: 048
     Dates: start: 20051027
  8. SEROQUEL [Suspect]
     Route: 048
     Dates: start: 20051115, end: 20060428
  9. SEROQUEL [Suspect]
     Route: 048
     Dates: start: 20051115, end: 20060428
  10. SEROQUEL [Suspect]
     Route: 048
     Dates: start: 20051115, end: 20060428
  11. SEROQUEL [Suspect]
     Route: 048
     Dates: start: 20051115, end: 20060428
  12. SEROQUEL [Suspect]
     Route: 048
     Dates: start: 20051115, end: 20060428
  13. SEROQUEL [Suspect]
     Route: 048
     Dates: start: 20051115, end: 20060428
  14. SEROQUEL [Suspect]
     Route: 048
     Dates: start: 20051115, end: 20060428
  15. GEODON [Concomitant]
  16. LITHIUM CARBONATE [Concomitant]
  17. PAXIL [Concomitant]
  18. FUROSEMIDE [Concomitant]
  19. POT CHLORIDE [Concomitant]
  20. ACETAMINOPHEN AND HYDROCODONE BITARTRATE [Concomitant]
  21. APAP W/ CODEINE [Concomitant]
  22. NEURONTIN [Concomitant]
     Dates: start: 20051103
  23. TRAMADOL HCL [Concomitant]
  24. LOVASTATIN [Concomitant]
  25. PROMETH/COD [Concomitant]
  26. FLOVENT [Concomitant]
  27. GG/PSE [Concomitant]
  28. ALBUTEROL [Concomitant]
  29. AZITHROMYCIN [Concomitant]
  30. PREDNISONE TAB [Concomitant]
  31. LIDODERM [Concomitant]
  32. NAPROXEN [Concomitant]
  33. NABUMETONE [Concomitant]
  34. PROPO-N/APAP [Concomitant]
  35. PRILOSEC [Concomitant]
  36. RANITIDINE [Concomitant]
  37. PEPCID [Concomitant]
     Dates: start: 20051027
  38. AMBIEN [Concomitant]
  39. QUININE [Concomitant]
  40. NEO/POLY/HC [Concomitant]
  41. CHERATUSSIN [Concomitant]
  42. METRONIDAZOL [Concomitant]
  43. ULTRACET [Concomitant]
  44. FLUCONAZOLE [Concomitant]
  45. LEXAPRO [Concomitant]
     Dates: start: 20051027
  46. CITALOPRAM [Concomitant]
     Dates: start: 20051027
  47. ACETAMINOPHEN [Concomitant]
     Indication: PAIN
     Dosage: 325 MG ONE TO TWO EVERY FOUR HOUR
     Dates: start: 20051027
  48. ACETAMINOPHEN [Concomitant]
     Indication: PYREXIA
     Dosage: 325 MG ONE TO TWO EVERY FOUR HOUR
     Dates: start: 20051027
  49. ACETAMINOPHEN [Concomitant]
     Indication: ARTHRITIS
     Dosage: 325 MG ONE TO TWO EVERY FOUR HOUR
     Dates: start: 20051027

REACTIONS (9)
  - BLOOD CHOLESTEROL INCREASED [None]
  - DIABETES MELLITUS [None]
  - DIABETES MELLITUS INADEQUATE CONTROL [None]
  - NERVOUSNESS [None]
  - NEUROPATHY PERIPHERAL [None]
  - PERIPHERAL SENSORY NEUROPATHY [None]
  - RESTLESS LEGS SYNDROME [None]
  - SOMNOLENCE [None]
  - TYPE 2 DIABETES MELLITUS [None]
